FAERS Safety Report 10948837 (Version 4)
Quarter: 2015Q2

REPORT INFORMATION
  Report Type: Spontaneous
  Country: US (occurrence: US)
  Receive Date: 20150324
  Receipt Date: 20150617
  Transmission Date: 20150821
  Serious: No
  Sender: FDA-Public Use
  Company Number: US-PFIZER INC-2015097044

PATIENT
  Age: 68 Year
  Sex: Female

DRUGS (10)
  1. CRESTOR [Concomitant]
     Active Substance: ROSUVASTATIN CALCIUM
     Dosage: UNK
  2. BABY ASPIRIN [Concomitant]
     Active Substance: ASPIRIN
     Dosage: UNK
  3. SUTENT [Suspect]
     Active Substance: SUNITINIB MALATE
     Indication: METASTATIC RENAL CELL CARCINOMA
     Dosage: 25 MG, CYCLIC
     Dates: start: 20130301
  4. SUTENT [Suspect]
     Active Substance: SUNITINIB MALATE
     Dosage: 25 MG 2 WEEKS ON 1 WEEK OFF
  5. SUTENT [Suspect]
     Active Substance: SUNITINIB MALATE
     Dosage: 25 MG, CYCLIC (25 MG 2 WEEKS ON 1 WEEK OFF)
     Dates: start: 20130301
  6. COQ10 [Concomitant]
     Active Substance: UBIDECARENONE
  7. LISINOPRIL. [Concomitant]
     Active Substance: LISINOPRIL
     Dosage: UNK
  8. SUTENT [Suspect]
     Active Substance: SUNITINIB MALATE
     Dosage: 25 MG, CYCLIC ((QOD, 2WKS ON/ 2WKS OFF)
  9. DILTIAZEM [Concomitant]
     Active Substance: DILTIAZEM
     Dosage: UNK
  10. OMEPRAZOLE. [Concomitant]
     Active Substance: OMEPRAZOLE
     Dosage: UNK

REACTIONS (23)
  - Neck pain [Unknown]
  - Peripheral swelling [Unknown]
  - Hypertension [Unknown]
  - Dyspnoea exertional [Unknown]
  - Tinnitus [Unknown]
  - Headache [Unknown]
  - Pallor [Unknown]
  - White blood cell count decreased [Unknown]
  - Oral disorder [Unknown]
  - Red blood cell count decreased [Unknown]
  - Arteriosclerosis coronary artery [Unknown]
  - Bursitis [Unknown]
  - Hypoaesthesia [Unknown]
  - Productive cough [Unknown]
  - Platelet count decreased [Unknown]
  - Asthenia [Unknown]
  - Alopecia [Unknown]
  - Dysgeusia [Unknown]
  - Anxiety [Unknown]
  - Aortic calcification [Unknown]
  - Pain in jaw [Unknown]
  - Musculoskeletal discomfort [Unknown]
  - Nervousness [Unknown]
